FAERS Safety Report 16160117 (Version 1)
Quarter: 2019Q2

REPORT INFORMATION
  Report Type: Report from Study
  Country: IT (occurrence: IT)
  Receive Date: 20190404
  Receipt Date: 20190404
  Transmission Date: 20190711
  Serious: Yes (Other)
  Sender: FDA-Public Use
  Company Number: IT-PFIZER INC-2019139269

PATIENT
  Age: 85 Year
  Sex: Female

DRUGS (1)
  1. XANAX [Suspect]
     Active Substance: ALPRAZOLAM
     Indication: ANXIETY
     Dosage: 5 GTT, SINGLE
     Route: 048
     Dates: start: 20190223, end: 20190223

REACTIONS (2)
  - Hypokinesia [Recovering/Resolving]
  - Respiratory rate decreased [Recovering/Resolving]

NARRATIVE: CASE EVENT DATE: 20190224
